FAERS Safety Report 20334294 (Version 1)
Quarter: 2022Q1

REPORT INFORMATION
  Report Type: Spontaneous
  Country: JP (occurrence: JP)
  Receive Date: 20220114
  Receipt Date: 20220114
  Transmission Date: 20220423
  Serious: Yes (Other)
  Sender: FDA-Public Use
  Company Number: JP-LUPIN PHARMACEUTICALS INC.-2022-00225

PATIENT
  Age: 81 Year
  Sex: Male

DRUGS (14)
  1. GATIFLOXACIN [Suspect]
     Active Substance: GATIFLOXACIN
     Indication: Pemphigoid
     Dosage: UNK UNK, TID (3 TIMES DAILY, EYE DROPS  )
     Route: 061
  2. GATIFLOXACIN [Suspect]
     Active Substance: GATIFLOXACIN
     Indication: Glaucoma
  3. VORICONAZOLE [Suspect]
     Active Substance: VORICONAZOLE
     Indication: Keratitis fungal
     Dosage: 200 MILLIGRAM
     Route: 065
  4. VORICONAZOLE [Suspect]
     Active Substance: VORICONAZOLE
     Dosage: 100 MILLIGRAM
     Route: 065
  5. FLUOROMETHOLONE [Suspect]
     Active Substance: FLUOROMETHOLONE
     Indication: Pemphigoid
     Dosage: EYE DROPS
     Route: 061
  6. FLUOROMETHOLONE [Suspect]
     Active Substance: FLUOROMETHOLONE
     Indication: Glaucoma
  7. OFLOXACIN [Suspect]
     Active Substance: OFLOXACIN
     Indication: Pemphigoid
     Dosage: UNK UNK, BID (EYE DROPS  )
     Route: 061
  8. OFLOXACIN [Suspect]
     Active Substance: OFLOXACIN
     Indication: Glaucoma
  9. MICONAZOLE [Suspect]
     Active Substance: MICONAZOLE
     Indication: Keratitis fungal
     Dosage: UNK UNK, QID (EYE DROPS)
     Route: 061
  10. MICONAZOLE [Suspect]
     Active Substance: MICONAZOLE
     Indication: Keratitis fungal
     Dosage: UNK
     Route: 057
  11. FLUCONAZOLE [Suspect]
     Active Substance: FLUCONAZOLE
     Indication: Keratitis fungal
     Dosage: EYE DROPS
     Route: 061
  12. NATAMYCIN [Suspect]
     Active Substance: NATAMYCIN
     Indication: Keratitis fungal
     Dosage: 6 TIMES DAILY
     Route: 061
  13. BRIMONIDINE [Concomitant]
     Active Substance: BRIMONIDINE TARTRATE
     Indication: Pemphigoid
     Dosage: UNK UNK, BID (EYE DROPS  )
     Route: 061
  14. BRIMONIDINE [Concomitant]
     Active Substance: BRIMONIDINE TARTRATE
     Indication: Glaucoma

REACTIONS (3)
  - Keratitis fungal [Recovered/Resolved]
  - Drug-induced liver injury [Unknown]
  - Drug ineffective [Unknown]
